FAERS Safety Report 24310552 (Version 2)
Quarter: 2025Q3

REPORT INFORMATION
  Report Type: Spontaneous
  Country: US (occurrence: US)
  Receive Date: 20240912
  Receipt Date: 20250814
  Transmission Date: 20251021
  Serious: No
  Sender: ROCHE
  Company Number: US-ROCHE-10000079301

PATIENT
  Age: 44 Year
  Sex: Female

DRUGS (2)
  1. XOLAIR PFS [Suspect]
     Active Substance: OMALIZUMAB
     Indication: Idiopathic urticaria
     Dosage: 150MG/ML.
     Route: 058
     Dates: start: 202108
  2. XOLAIR PFS [Suspect]
     Active Substance: OMALIZUMAB

REACTIONS (6)
  - Contusion [Unknown]
  - Off label use [Unknown]
  - Injection site bruising [Unknown]
  - Dyspnoea [Unknown]
  - Chest pain [Unknown]
  - Inflammation [Unknown]

NARRATIVE: CASE EVENT DATE: 20240831
